FAERS Safety Report 19835298 (Version 1)
Quarter: 2021Q3

REPORT INFORMATION
  Report Type: Spontaneous
  Country: CN (occurrence: CN)
  Receive Date: 20210915
  Receipt Date: 20210915
  Transmission Date: 20211014
  Serious: Yes (Other)
  Sender: FDA-Public Use
  Company Number: CN-009507513-2109CHN002559

PATIENT
  Age: 44 Year
  Sex: Female
  Weight: 51 kg

DRUGS (3)
  1. IRON POLYSACCHARIDE COMPLEX [Concomitant]
     Indication: ANAEMIA OF PREGNANCY
     Dosage: 300 MILLIGRAM, QD
     Route: 048
     Dates: start: 20190617, end: 20190702
  2. TIENAM [Suspect]
     Active Substance: CILASTATIN SODIUM\IMIPENEM
     Indication: AMNIOTIC CAVITY INFECTION
     Dosage: 1 GRAM, Q8H
     Route: 042
     Dates: start: 20190715, end: 201908
  3. CEFOXITIN SODIUM [Concomitant]
     Active Substance: CEFOXITIN SODIUM
     Indication: INFECTION
     Dosage: 2 GRAM, Q8H
     Route: 042
     Dates: start: 20190617, end: 20190702

REACTIONS (3)
  - Pathogen resistance [Recovered/Resolved]
  - Maternal exposure during pregnancy [Unknown]
  - Off label use [Unknown]

NARRATIVE: CASE EVENT DATE: 2019
